FAERS Safety Report 9279986 (Version 2)
Quarter: 2013Q2

REPORT INFORMATION
  Report Type: Spontaneous
  Country: NL (occurrence: NL)
  Receive Date: 20130509
  Receipt Date: 20130604
  Transmission Date: 20140414
  Serious: Yes (Hospitalization, Other)
  Sender: FDA-Public Use
  Company Number: NL-AMGEN-NLDSP2013032082

PATIENT
  Age: 75 Year
  Sex: Female

DRUGS (11)
  1. ARANESP [Suspect]
     Indication: PRODUCT USED FOR UNKNOWN INDICATION
     Dosage: 500 UNK, Q3WK
     Route: 058
     Dates: start: 20130411
  2. MOVICOLON [Concomitant]
  3. PRAVASTATINE [Concomitant]
     Dosage: 40 MG, UNK
  4. ACETYLSALICYLZUUR [Concomitant]
     Dosage: 80 MG, UNK
  5. ANASTROZOLE [Concomitant]
     Dosage: 1 MG, UNK
     Route: 048
  6. BISOPROLOL [Concomitant]
     Dosage: 5 MG, UNK
     Route: 048
  7. CLOPIDOGREL [Concomitant]
     Dosage: 75 MG, UNK
  8. DILTIAZEM [Concomitant]
     Dosage: 200 MG, UNK
  9. LEVOTHYROXINE [Concomitant]
     Dosage: 25 MUG, UNK
  10. LISINOPRIL [Concomitant]
     Dosage: 5 MG, UNK
     Route: 048
  11. SIMVASTATIN [Concomitant]
     Dosage: 20 MG, UNK
     Route: 048

REACTIONS (1)
  - Acute myocardial infarction [Recovering/Resolving]
